FAERS Safety Report 15292126 (Version 1)
Quarter: 2018Q3

REPORT INFORMATION
  Report Type: Spontaneous
  Country: FR (occurrence: FR)
  Receive Date: 20180818
  Receipt Date: 20180818
  Transmission Date: 20181010
  Serious: Yes (Death, Congenital Anomaly, Other)
  Sender: FDA-Public Use
  Company Number: FR-AUROBINDO-AUR-APL-2018-041924

PATIENT

DRUGS (2)
  1. AZITHROMYCIN ANHYDROUS. [Suspect]
     Active Substance: AZITHROMYCIN ANHYDROUS
     Indication: PROPHYLAXIS AGAINST HIV INFECTION
     Dosage: 1 GRAM, DAILY
     Route: 064
     Dates: start: 20180315
  2. EVIPLERA [Suspect]
     Active Substance: EMTRICITABINE\RILPIVIRINE\TENOFOVIR DISOPROXIL FUMARATE
     Indication: PROPHYLAXIS AGAINST HIV INFECTION
     Dosage: 1 DOSAGE FORM, DAILY
     Route: 064
     Dates: start: 20180313, end: 20180415

REACTIONS (4)
  - Foetal exposure during pregnancy [Fatal]
  - Abortion induced [Fatal]
  - Foetal malformation [Fatal]
  - Limb deformity [Fatal]

NARRATIVE: CASE EVENT DATE: 20180620
